FAERS Safety Report 19520023 (Version 1)
Quarter: 2021Q3

REPORT INFORMATION
  Report Type: Spontaneous
  Country: US (occurrence: US)
  Receive Date: 20210712
  Receipt Date: 20210712
  Transmission Date: 20211014
  Serious: Yes (Other)
  Sender: FDA-Public Use
  Company Number: None

PATIENT
  Age: 22 Year
  Sex: Female
  Weight: 55.35 kg

DRUGS (1)
  1. MEDROXYPROGESTERONE ACETATE INTRAMUSC VIAL 150 MG/ML [Suspect]
     Active Substance: MEDROXYPROGESTERONE ACETATE
     Indication: CONTRACEPTION
     Dosage: ?          OTHER FREQUENCY:Q 12 WEEKS;?
     Route: 030
     Dates: start: 20200513, end: 20210119

REACTIONS (3)
  - Pregnancy with injectable contraceptive [None]
  - Treatment failure [None]
  - Pregnancy test positive [None]

NARRATIVE: CASE EVENT DATE: 20210419
